FAERS Safety Report 15615914 (Version 3)
Quarter: 2018Q4

REPORT INFORMATION
  Report Type: Report from Study
  Country: None (occurrence: CH)
  Receive Date: 20181114
  Receipt Date: 20181207
  Transmission Date: 20190205
  Serious: Yes (Death, Hospitalization, Other)
  Sender: FDA-Public Use
  Company Number: CH-ABBVIE-18S-151-2554410-00

PATIENT
  Sex: Female

DRUGS (5)
  1. DUODOPA [Suspect]
     Active Substance: CARBIDOPA\LEVODOPA
     Dosage: MORNING 3ML, DAY 1.9ML/H, NIGHT 1.4ML/H,ED 0ML,24H THERAPY
     Route: 050
     Dates: start: 20180327, end: 20180418
  2. DUODOPA [Suspect]
     Active Substance: CARBIDOPA\LEVODOPA
     Dosage: MD 3ML, DAY 2ML/H, CRD 2ML/H, CRN1.4ML/H,ED 1.5ML?24H THERAPY
     Route: 050
     Dates: start: 20180418, end: 20181109
  3. DUODOPA [Suspect]
     Active Substance: CARBIDOPA\LEVODOPA
     Indication: PARKINSON^S DISEASE
     Route: 050
     Dates: start: 20100512, end: 20180327
  4. MADOPAR LIQ [Concomitant]
     Indication: PARKINSON^S DISEASE
     Route: 065
     Dates: start: 20181109, end: 20181113
  5. DUODOPA [Suspect]
     Active Substance: CARBIDOPA\LEVODOPA
     Dosage: MD 3ML, CRD2ML/H, CRN 1.4ML/H, ED 1.5ML 24H THERAPY
     Route: 050
     Dates: start: 20181113

REACTIONS (10)
  - Pneumonia aspiration [Fatal]
  - Dysphagia [Unknown]
  - Suicidal ideation [Unknown]
  - Device dislocation [Unknown]
  - Chills [Unknown]
  - Device breakage [Unknown]
  - Device dislocation [Not Recovered/Not Resolved]
  - Device issue [Recovered/Resolved]
  - Pallor [Unknown]
  - Stoma site reaction [Recovered/Resolved]
